FAERS Safety Report 10377405 (Version 1)
Quarter: 2014Q3

REPORT INFORMATION
  Report Type: Spontaneous
  Country: JP (occurrence: JP)
  Receive Date: 20140812
  Receipt Date: 20140812
  Transmission Date: 20150326
  Serious: Yes (Other)
  Sender: FDA-Public Use
  Company Number: PHHY2009JP072128

PATIENT
  Age: 66 Year
  Sex: Female

DRUGS (5)
  1. TASIGNA [Suspect]
     Active Substance: NILOTINIB
     Dosage: 400 MG, UNK
     Route: 048
  2. TASIGNA [Suspect]
     Active Substance: NILOTINIB
     Indication: CHRONIC MYELOID LEUKAEMIA
     Dosage: 400 MG, QD
     Route: 048
     Dates: start: 20060719
  3. TASIGNA [Suspect]
     Active Substance: NILOTINIB
     Dosage: 800 MG, UNK
     Route: 048
  4. TASIGNA [Suspect]
     Active Substance: NILOTINIB
     Dosage: 400 MG, UNK
     Route: 048
  5. TASIGNA [Suspect]
     Active Substance: NILOTINIB
     Dosage: 800 MG, UNK
     Route: 048

REACTIONS (23)
  - Rash [Unknown]
  - Muscle spasms [Unknown]
  - Tremor [Unknown]
  - Haemoglobin decreased [Unknown]
  - Platelet count decreased [Unknown]
  - Puncture site pain [Unknown]
  - Skin exfoliation [Unknown]
  - Electrocardiogram QT prolonged [Unknown]
  - Blood bilirubin increased [Unknown]
  - Pruritus [Unknown]
  - Lipase increased [Unknown]
  - Chest pain [Unknown]
  - Chronic sinusitis [Unknown]
  - Pain [Unknown]
  - Eczema [Unknown]
  - Cartilage injury [Unknown]
  - Blepharitis [Unknown]
  - Arthropod bite [Unknown]
  - Nasopharyngitis [Unknown]
  - Blood glucose increased [Unknown]
  - Malaise [Unknown]
  - Conjunctivitis allergic [Unknown]
  - Dental caries [Unknown]

NARRATIVE: CASE EVENT DATE: 200608
